FAERS Safety Report 21847506 (Version 3)
Quarter: 2023Q2

REPORT INFORMATION
  Report Type: Spontaneous
  Country: US (occurrence: US)
  Receive Date: 20230111
  Receipt Date: 20230630
  Transmission Date: 20230722
  Serious: Yes (Other)
  Sender: FDA-Public Use
  Company Number: US-SA-SAC20230110001163

PATIENT
  Age: 31 Year
  Sex: Male

DRUGS (6)
  1. ALPROLIX [Suspect]
     Active Substance: EFTRENONACOG ALFA
     Indication: Factor IX deficiency
     Dosage: 8600 IU (7740-9460) SLOW IV PUSH EVERY 14 DAYS
     Route: 042
     Dates: start: 20170906
  2. ALPROLIX [Suspect]
     Active Substance: EFTRENONACOG ALFA
     Indication: Factor IX deficiency
     Dosage: 8600 IU (7740-9460) SLOW IV PUSH EVERY 14 DAYS
     Route: 042
     Dates: start: 20170906
  3. ALPROLIX [Suspect]
     Active Substance: EFTRENONACOG ALFA
     Dosage: 8600 IU (7740-9460) SLOW IV PUSH EVERY 14 DAYS
     Route: 042
     Dates: start: 202201
  4. ALPROLIX [Suspect]
     Active Substance: EFTRENONACOG ALFA
     Dosage: 8600 IU (7740-9460) SLOW IV PUSH EVERY 14 DAYS
     Route: 042
     Dates: start: 202201
  5. ALPROLIX [Suspect]
     Active Substance: EFTRENONACOG ALFA
     Dosage: 8600 IU (7740-9460) SLOW IV PUSH EVERY 14 DAYS
     Route: 042
     Dates: start: 20220819
  6. ALPROLIX [Suspect]
     Active Substance: EFTRENONACOG ALFA
     Dosage: 8600 IU (7740-9460) SLOW IV PUSH EVERY 14 DAYS
     Route: 042
     Dates: start: 20220819

REACTIONS (3)
  - Haemorrhage [Recovering/Resolving]
  - Haemorrhage [Unknown]
  - Haemorrhage [Recovered/Resolved]

NARRATIVE: CASE EVENT DATE: 20230602
